FAERS Safety Report 8025025-9 (Version None)
Quarter: 2012Q1

REPORT INFORMATION
  Report Type: 
  Country: None (occurrence: None)
  Receive Date: 20120103
  Receipt Date: 20111222
  Transmission Date: 20120608
  Serious: Yes (Death, Hospitalization)
  Sender: FDA-Public Use
  Company Number: ABR_00230_2011

PATIENT
  Age: 58 Year
  Sex: Female

DRUGS (13)
  1. TOBRAMYCIN [Suspect]
     Indication: PRODUCT USED FOR UNKNOWN INDICATION
     Dosage: DF
  2. CLARITHROMYCIN [Suspect]
     Indication: DIFFUSE PANBRONCHIOLITIS
     Dosage: 200 MG QD UNKNOWN
     Dates: start: 20061001, end: 20091001
  3. MOXIFLOXACIN [Concomitant]
  4. TIOTROPIUM [Concomitant]
  5. ST COMPOUND (UNKNOWN) [Concomitant]
  6. CARBAPENEMS (CARBAPENEM) [Suspect]
     Indication: PRODUCT USED FOR UNKNOWN INDICATION
     Dosage: DF
  7. AMINOGLYCOSIDE ANTIBACTERIALS (AMINOGLYCOSIDE) [Suspect]
     Indication: PRODUCT USED FOR UNKNOWN INDICATION
     Dosage: DF
  8. AZITHROMYCIN [Concomitant]
  9. CORTICOSTEROIDS (STEROIDS) [Suspect]
     Indication: PRODUCT USED FOR UNKNOWN INDICATION
     Dosage: DF
  10. PIPERACILLIN AND TAZOBACTAM [Concomitant]
  11. ERYTHROMYCIN [Suspect]
     Indication: DIFFUSE PANBRONCHIOLITIS
     Dosage: 200 MG BID UNKNOWN
     Dates: start: 20051201, end: 20061001
  12. SALMETEROL [Concomitant]
  13. N-ACETYLCYSTEINE (UNKNOWN) [Concomitant]

REACTIONS (9)
  - NO THERAPEUTIC RESPONSE [None]
  - COLD AGGLUTININS POSITIVE [None]
  - HYPERSENSITIVITY [None]
  - DRUG RESISTANCE [None]
  - CONDITION AGGRAVATED [None]
  - HYPOXIA [None]
  - PNEUMONIA [None]
  - RESPIRATORY FAILURE [None]
  - DIFFUSE PANBRONCHIOLITIS [None]
